FAERS Safety Report 4411077-1 (Version None)
Quarter: 2004Q3

REPORT INFORMATION
  Report Type: 
  Country: None (occurrence: None)
  Receive Date: 20040726
  Receipt Date: 20040708
  Transmission Date: 20050211
  Serious: Yes (Hospitalization)
  Sender: FDA-Public Use
  Company Number: 201009

PATIENT
  Sex: Female

DRUGS (1)
  1. AVONEX [Suspect]
     Indication: MULTIPLE SCLEROSIS
     Dosage: 30 MCG QW IM
     Route: 030
     Dates: end: 20040625

REACTIONS (5)
  - ASTHENIA [None]
  - FATIGUE [None]
  - HEART RATE INCREASED [None]
  - HYPOKINESIA [None]
  - LOSS OF CONSCIOUSNESS [None]
